FAERS Safety Report 22130144 (Version 2)
Quarter: 2023Q2

REPORT INFORMATION
  Report Type: Spontaneous
  Country: AR (occurrence: AR)
  Receive Date: 20230323
  Receipt Date: 20230405
  Transmission Date: 20230722
  Serious: Yes (Hospitalization)
  Sender: FDA-Public Use
  Company Number: AR-BAYER-2023A037522

PATIENT
  Age: 60 Year
  Sex: Female
  Weight: 78 kg

DRUGS (3)
  1. GADOBUTROL [Suspect]
     Active Substance: GADOBUTROL
     Indication: Magnetic resonance imaging abdominal
     Dosage: 7.5 ML, ONCE
     Route: 042
     Dates: start: 20230314, end: 20230314
  2. GADOBUTROL [Suspect]
     Active Substance: GADOBUTROL
     Indication: Abdominal pain lower
  3. BISOPROLOL FUMARATE [Concomitant]
     Active Substance: BISOPROLOL FUMARATE
     Dosage: 5 MG

REACTIONS (4)
  - Eyelid oedema [Recovered/Resolved]
  - Circumoral oedema [Recovered/Resolved]
  - Respiratory tract irritation [Recovered/Resolved]
  - Cough [Recovered/Resolved]

NARRATIVE: CASE EVENT DATE: 20230314
